FAERS Safety Report 16233413 (Version 1)
Quarter: 2019Q2

REPORT INFORMATION
  Report Type: Report from Study
  Country: US (occurrence: US)
  Receive Date: 20190424
  Receipt Date: 20190424
  Transmission Date: 20190711
  Serious: Yes (Hospitalization)
  Sender: FDA-Public Use
  Company Number: US-SA-2019SA045376

PATIENT
  Age: 60 Year
  Sex: Female

DRUGS (2)
  1. INSULIN GLARGINE [Suspect]
     Active Substance: INSULIN GLARGINE
     Indication: TYPE 1 DIABETES MELLITUS
     Dosage: 10 IU, QD
     Route: 058
  2. INSULIN GLULISINE [Suspect]
     Active Substance: INSULIN GLULISINE
     Indication: TYPE 1 DIABETES MELLITUS
     Dosage: UNK UNK, TID/ 3-4 UNITS SUBCUTANEOUSLY THREE TIMES PER DAY
     Route: 058

REACTIONS (3)
  - Heart rate increased [Unknown]
  - Liver disorder [Unknown]
  - Gastrointestinal disorder [Recovered/Resolved]
